FAERS Safety Report 6268172-4 (Version None)
Quarter: 2009Q3

REPORT INFORMATION
  Report Type: 
  Country: None (occurrence: None)
  Receive Date: 20090714
  Receipt Date: 20090714
  Transmission Date: 20100115
  Serious: Yes (Hospitalization)
  Sender: FDA-Public Use
  Company Number: None

PATIENT
  Age: 55 Year
  Sex: Male

DRUGS (1)
  1. ISOSORBIDE DINITRATE [Suspect]
     Indication: HYPERTENSION
     Dates: start: 20090501, end: 20090529

REACTIONS (13)
  - AORTIC VALVE SCLEROSIS [None]
  - BALANCE DISORDER [None]
  - CHEST PAIN [None]
  - CORONARY ARTERY DISEASE [None]
  - DIASTOLIC DYSFUNCTION [None]
  - DIZZINESS [None]
  - EJECTION FRACTION DECREASED [None]
  - FLUID INTAKE REDUCED [None]
  - HYPOPHAGIA [None]
  - LEFT VENTRICULAR HYPERTROPHY [None]
  - OVERDOSE [None]
  - POLLAKIURIA [None]
  - PRESYNCOPE [None]
